FAERS Safety Report 7789999-3 (Version None)
Quarter: 2011Q3

REPORT INFORMATION
  Report Type: 
  Country: None (occurrence: None)
  Receive Date: 20110930
  Receipt Date: 20110120
  Transmission Date: 20111222
  Serious: No
  Sender: FDA-Public Use
  Company Number: US-ASTRAZENECA-2004UW05200

PATIENT
  Age: 52 Year
  Sex: Female
  Weight: 49.9 kg

DRUGS (7)
  1. CRESTOR [Concomitant]
  2. LIPITOR [Concomitant]
  3. ARIMIDEX [Suspect]
     Indication: BREAST CANCER
     Route: 048
     Dates: start: 20040101
  4. CALCIUM CARBONATE [Concomitant]
  5. AMBIEN [Concomitant]
  6. XANAX [Concomitant]
     Indication: ANXIETY
  7. VITAMIN TAB [Concomitant]

REACTIONS (4)
  - ARTHRALGIA [None]
  - BONE PAIN [None]
  - INSOMNIA [None]
  - TUMOUR MARKER INCREASED [None]
